FAERS Safety Report 13603433 (Version 4)
Quarter: 2019Q2

REPORT INFORMATION
  Report Type: Report from Study
  Country: US (occurrence: US)
  Receive Date: 20170601
  Receipt Date: 20190429
  Transmission Date: 20190711
  Serious: Yes (Hospitalization, Other)
  Sender: FDA-Public Use
  Company Number: US-OTSUKA-2016_023079

PATIENT
  Sex: Male
  Weight: 59 kg

DRUGS (19)
  1. VENTOLIN HFA [Concomitant]
     Active Substance: ALBUTEROL SULFATE
     Indication: PRODUCT USED FOR UNKNOWN INDICATION
     Dosage: 90 ?G, INHALE 2 PUFFS AS DIRECTED EVERY 6 HOURS AS NEEDED FOR WHEEZING
     Route: 065
  2. KEFLEX [Concomitant]
     Active Substance: CEPHALEXIN
     Indication: PRODUCT USED FOR UNKNOWN INDICATION
     Dosage: 500 MG, (4 TIMES DAILY)
     Route: 048
  3. MIRALAX [Concomitant]
     Active Substance: POLYETHYLENE GLYCOL 3350
     Indication: PRODUCT USED FOR UNKNOWN INDICATION
     Dosage: TAKE 17 G
     Route: 048
  4. DELTASONE [Concomitant]
     Active Substance: PREDNISONE
     Indication: PRODUCT USED FOR UNKNOWN INDICATION
     Dosage: 10 MG, TAKE 4 TABS DAILY FOR 3 DAYS THEN 3 TABS DAILY FOR 3 DAYS THEN 2 TABS DAILY FOR 2 DAYS THEN 1
     Route: 048
  5. ALLEGRA [Concomitant]
     Active Substance: FEXOFENADINE HYDROCHLORIDE
     Indication: PRODUCT USED FOR UNKNOWN INDICATION
     Dosage: 60 MG, TAKE 3 TABS (PATIENT TAKING DIFFERENTLY:TAKE 180 MG BEFORE BREAKFAST
     Route: 048
  6. MUCINEX [Concomitant]
     Active Substance: GUAIFENESIN
     Indication: PRODUCT USED FOR UNKNOWN INDICATION
     Dosage: 600 MG, BID
     Route: 048
  7. DUONEB [Concomitant]
     Active Substance: ALBUTEROL SULFATE\IPRATROPIUM BROMIDE
     Indication: PRODUCT USED FOR UNKNOWN INDICATION
     Dosage: 3 ML, TAKE 3 ML(1 VIAL) BY ON 6 HOURS AS NEDDED FOR WHEEZING
     Route: 065
  8. ASPIRIN (E.C.) [Concomitant]
     Active Substance: ASPIRIN
     Indication: PRODUCT USED FOR UNKNOWN INDICATION
     Dosage: 325 MG, BID
     Route: 048
  9. ZITHROMAX [Concomitant]
     Active Substance: AZITHROMYCIN DIHYDRATE
     Indication: PRODUCT USED FOR UNKNOWN INDICATION
     Dosage: 250 MG, TAKE 2 TABLETS (500 MG) ON 1 DAY, FOLLOWED BY 1 TAB (250MG) ON DAYS 2 THROUGH 5
     Route: 048
  10. SYMBICORT [Concomitant]
     Active Substance: BUDESONIDE\FORMOTEROL FUMARATE DIHYDRATE
     Indication: PRODUCT USED FOR UNKNOWN INDICATION
     Dosage: 4.5 ?G, INHALE 2 PUFFS AS DIRECTED 2 TIMES
     Route: 065
  11. TOLVAPTAN [Suspect]
     Active Substance: TOLVAPTAN
     Indication: BLOOD OSMOLARITY DECREASED
     Dosage: 30 MG, QD
     Route: 048
  12. TYLENOL [Concomitant]
     Active Substance: ACETAMINOPHEN
     Indication: PRODUCT USED FOR UNKNOWN INDICATION
     Dosage: 500 MG, TAKE 2 TABS EVERY 6 HOURS
     Route: 048
  13. ACCUNEB [Concomitant]
     Active Substance: ALBUTEROL SULFATE
     Indication: PRODUCT USED FOR UNKNOWN INDICATION
     Dosage: 2.5 MG, TAKE 3 ML BY NEBULIZATION EVERY 6 HOURS AS NEEDED FOR WHEEZING
     Route: 065
  14. PREDNISONE. [Concomitant]
     Active Substance: PREDNISONE
     Indication: PRODUCT USED FOR UNKNOWN INDICATION
     Dosage: UNK
     Route: 065
  15. COLACE [Concomitant]
     Active Substance: DOCUSATE SODIUM
     Indication: PRODUCT USED FOR UNKNOWN INDICATION
     Dosage: 100 MG, TAKE 2 CAPS
     Route: 048
  16. TOLVAPTAN [Suspect]
     Active Substance: TOLVAPTAN
     Indication: HYPONATRAEMIA
  17. LIDOCAINE. [Concomitant]
     Active Substance: LIDOCAINE
     Indication: PRODUCT USED FOR UNKNOWN INDICATION
     Dosage: 5 ML, AS NEEDED (INTRACTABLE COUGH)
     Route: 048
  18. ZOLOFT [Concomitant]
     Active Substance: SERTRALINE HYDROCHLORIDE
     Indication: PRODUCT USED FOR UNKNOWN INDICATION
     Dosage: 100 MG, QD
     Route: 048
  19. SPIRIVA [Concomitant]
     Active Substance: TIOTROPIUM BROMIDE MONOHYDRATE
     Indication: PRODUCT USED FOR UNKNOWN INDICATION
     Dosage: 18 ?G, INHALE CAP AS DIRECTED DAILY
     Route: 065

REACTIONS (18)
  - Chronic obstructive pulmonary disease [Unknown]
  - Depression [Unknown]
  - Weight decreased [Unknown]
  - Malignant neoplasm progression [Unknown]
  - Malaise [Unknown]
  - Incorrect product administration duration [Unknown]
  - Iron deficiency anaemia [Unknown]
  - Malabsorption [Not Recovered/Not Resolved]
  - Treatment noncompliance [Unknown]
  - Asthenia [Unknown]
  - Osteomyelitis [Unknown]
  - Acute respiratory failure [Unknown]
  - Bronchiectasis [Unknown]
  - Fall [Unknown]
  - Blood sodium decreased [Unknown]
  - Loss of consciousness [Unknown]
  - Multifocal micronodular pneumocyte hyperplasia [Unknown]
  - Staphylococcal infection [Unknown]

NARRATIVE: CASE EVENT DATE: 2018
